FAERS Safety Report 13077477 (Version 1)
Quarter: 2016Q4

REPORT INFORMATION
  Report Type: Spontaneous
  Country: US (occurrence: US)
  Receive Date: 20161231
  Receipt Date: 20161231
  Transmission Date: 20170207
  Serious: No
  Sender: FDA-Public Use
  Company Number: US-B.I. PHARMACEUTICALS,INC./RIDGEFIELD-2016-BI-087687

PATIENT
  Age: 74 Year
  Sex: Female

DRUGS (3)
  1. HYDROCODONE [Concomitant]
     Active Substance: HYDROCODONE
     Indication: ARTHRITIS
     Dosage: ONE AS NEEDED;  FORM STRENGTH: 10/325MG
     Route: 048
  2. HYDROCODONE [Concomitant]
     Active Substance: HYDROCODONE
     Indication: SURGERY
  3. SPIRIVA [Suspect]
     Active Substance: TIOTROPIUM BROMIDE MONOHYDRATE
     Indication: CHRONIC OBSTRUCTIVE PULMONARY DISEASE
     Dosage: 2 PUFFS DAILY;  FORM STRENGTH: 2.5 MCG; FORMULATION: INHALATION SPRAY? ADMINISTRATION CORRECT? YES
     Route: 055
     Dates: start: 201512

REACTIONS (5)
  - Influenza [Recovered/Resolved]
  - Tonsillolith [Not Recovered/Not Resolved]
  - Leukoplakia oral [Not Recovered/Not Resolved]
  - Rash [Not Recovered/Not Resolved]
  - Throat irritation [Not Recovered/Not Resolved]

NARRATIVE: CASE EVENT DATE: 201611
